FAERS Safety Report 8730814 (Version 3)
Quarter: 2013Q2

REPORT INFORMATION
  Report Type: Spontaneous
  Country: US (occurrence: None)
  Receive Date: 20120725
  Receipt Date: 20130124
  Transmission Date: 20140414
  Serious: Yes (Death, Hospitalization)
  Sender: FDA-Public Use
  Company Number: 2012PROUSA01657

PATIENT
  Age: 70 Year
  Sex: Male
  Weight: 82.5 kg

DRUGS (12)
  1. PROVENGE [Suspect]
     Indication: PROSTATE CANCER METASTATIC
     Dosage: 250 ML, SINGLE, INTRAVENOUS
     Route: 042
     Dates: start: 20120618, end: 20120618
  2. ATIVAN (LORAZEPAM) [Concomitant]
  3. LISINOPRIL [Concomitant]
  4. METOPROLOL (METOPROLOL TARTRATE) [Concomitant]
  5. NITROGLYCERIN (GLYCERYL TRINITRATE) [Concomitant]
  6. ZYTIGA (ABIRATERONE ACETATE) [Concomitant]
  7. ZOCOR (SIMVASTATIN) [Concomitant]
  8. PREDNISONE [Concomitant]
  9. ECOTRIN (ACETYLSALICYLIC ACID) [Concomitant]
  10. NORCO (HYDROCODONE BITARTRATE, PARACETAMOL) [Concomitant]
  11. MAGNESIUM OXIDE [Concomitant]
  12. COUMADIN (WARFARIN SODIUM) [Concomitant]

REACTIONS (2)
  - Cerebrovascular accident [None]
  - Influenza like illness [None]
